FAERS Safety Report 11292490 (Version 3)
Quarter: 2015Q3

REPORT INFORMATION
  Report Type: Spontaneous
  Country: US (occurrence: US)
  Receive Date: 20150722
  Receipt Date: 20150903
  Transmission Date: 20151125
  Serious: Yes (Hospitalization, Other)
  Sender: FDA-Public Use
  Company Number: US-ASTRAZENECA-2015SE68821

PATIENT
  Age: 54 Year
  Sex: Female
  Weight: 67.9 kg

DRUGS (5)
  1. ATORVASTATIN [Concomitant]
     Active Substance: ATORVASTATIN
  2. LISINOPRIL. [Concomitant]
     Active Substance: LISINOPRIL
     Route: 048
  3. DUAVEE [Suspect]
     Active Substance: BAZEDOXIFENE ACETATE\ESTROGENS, CONJUGATED
     Indication: MENOPAUSE
     Dosage: EVERY DAY 0.45-20 MG
     Route: 048
     Dates: start: 20140917, end: 20150710
  4. IBUPROFEN. [Concomitant]
     Active Substance: IBUPROFEN
  5. CRESTOR [Suspect]
     Active Substance: ROSUVASTATIN CALCIUM
     Route: 048

REACTIONS (7)
  - Headache [Unknown]
  - Carotid artery stenosis [Unknown]
  - Dysarthria [Unknown]
  - Cerebrovascular accident [Recovered/Resolved]
  - VIIth nerve paralysis [Unknown]
  - Aphasia [Unknown]
  - Carotid artery thrombosis [Recovered/Resolved]

NARRATIVE: CASE EVENT DATE: 20150706
